FAERS Safety Report 8168732 (Version 3)
Quarter: 2022Q4

REPORT INFORMATION
  Report Type: Spontaneous
  Country: GB (occurrence: GB)
  Receive Date: 20111005
  Receipt Date: 20221221
  Transmission Date: 20230113
  Serious: Yes (Death, Hospitalization, Other)
  Sender: FDA-Public Use
  Company Number: GB-RANBAXY-2011R1-48539

PATIENT
  Age: 27 Year
  Sex: Female

DRUGS (8)
  1. CO-DYDRAMOL [Suspect]
     Active Substance: ACETAMINOPHEN\DIHYDROCODEINE
     Indication: Product used for unknown indication
     Dosage: UNK
     Route: 048
  2. CO-DYDRAMOL [Suspect]
     Active Substance: ACETAMINOPHEN\DIHYDROCODEINE
     Route: 065
  3. DICLOFENAC [Suspect]
     Active Substance: DICLOFENAC
     Indication: Product used for unknown indication
     Dosage: 2800 MG, QD
     Route: 065
  4. FERROUS SULFATE [Suspect]
     Active Substance: FERROUS SULFATE
     Indication: Anaemia
     Dosage: 200 MILLIGRAM, TID
     Route: 065
  5. IBUPROFEN [Suspect]
     Active Substance: IBUPROFEN
     Indication: Product used for unknown indication
     Dosage: 7000 MG, QD
     Route: 065
  6. ULTOMIRIS [Suspect]
     Active Substance: RAVULIZUMAB-CWVZ
     Indication: Paroxysmal nocturnal haemoglobinuria
     Dosage: 3300 MILLIGRAM 8 WEEKLY
     Route: 042
     Dates: start: 20210907
  7. ULTOMIRIS [Suspect]
     Active Substance: RAVULIZUMAB-CWVZ
     Dosage: UNK
     Route: 042
     Dates: start: 20210824
  8. PENICILLIN [Concomitant]
     Active Substance: PENICILLIN
     Indication: Prophylaxis
     Route: 065

REACTIONS (40)
  - Intentional overdose [Unknown]
  - Overdose [Fatal]
  - Overdose [Fatal]
  - Acidosis [Unknown]
  - Alanine aminotransferase increased [Fatal]
  - Anaemia [Unknown]
  - Blood bilirubin increased [Unknown]
  - Blood calcium decreased [Unknown]
  - Coagulopathy [Fatal]
  - Blood creatinine increased [Unknown]
  - Electrolyte imbalance [Unknown]
  - Haematemesis [Unknown]
  - Hepatotoxicity [Fatal]
  - Hypotension [Unknown]
  - International normalised ratio increased [Fatal]
  - Metabolic acidosis [Fatal]
  - Multiple organ dysfunction syndrome [Fatal]
  - Nausea [Unknown]
  - Blood phosphorus decreased [Unknown]
  - Platelet count decreased [Unknown]
  - Blood iron increased [Unknown]
  - Sinus tachycardia [Unknown]
  - Vomiting [Unknown]
  - Anaemia [Unknown]
  - Blood bicarbonate decreased [Unknown]
  - Blood lactic acid increased [Fatal]
  - Blood pressure diastolic decreased [Unknown]
  - General physical health deterioration [Unknown]
  - Analgesic drug level increased [Unknown]
  - White blood cell count increased [Unknown]
  - Electrolyte imbalance [Unknown]
  - pH body fluid decreased [Fatal]
  - Acute hepatic failure [Fatal]
  - Blood bilirubin increased [Fatal]
  - Blood calcium decreased [Unknown]
  - Hypotension [Unknown]
  - Haematemesis [Fatal]
  - Platelet count decreased [Fatal]
  - Poor venous access [Unknown]
  - Diarrhoea [Unknown]
